FAERS Safety Report 13980486 (Version 2)
Quarter: 2017Q3

REPORT INFORMATION
  Report Type: Spontaneous
  Country: US (occurrence: US)
  Receive Date: 20170918
  Receipt Date: 20170927
  Transmission Date: 20171128
  Serious: Yes (Hospitalization, Other)
  Sender: FDA-Public Use
  Company Number: US-AUROBINDO-AUR-APL-2017-40296

PATIENT
  Age: 65 Year
  Sex: Female

DRUGS (2)
  1. TACROLIMUS. [Suspect]
     Active Substance: TACROLIMUS
     Indication: IMMUNOSUPPRESSION
     Route: 065
  2. PREDNISONE. [Suspect]
     Active Substance: PREDNISONE
     Indication: IMMUNOSUPPRESSION
     Route: 065

REACTIONS (14)
  - Pyrexia [Recovering/Resolving]
  - Tenderness [Recovering/Resolving]
  - Pseudomonas infection [Recovering/Resolving]
  - Hypotension [Recovering/Resolving]
  - Leukopenia [Recovering/Resolving]
  - Tachycardia [Recovering/Resolving]
  - Headache [Recovering/Resolving]
  - Eye swelling [Recovering/Resolving]
  - Pain in extremity [Recovering/Resolving]
  - Ecthyma [Recovering/Resolving]
  - Periorbital cellulitis [Recovering/Resolving]
  - Bacteraemia [Recovering/Resolving]
  - Lacrimation increased [Recovering/Resolving]
  - Sinusitis bacterial [Recovering/Resolving]
